FAERS Safety Report 5690644-1 (Version None)
Quarter: 2008Q2

REPORT INFORMATION
  Report Type: 
  Country: None (occurrence: None)
  Receive Date: 20080401
  Receipt Date: 20080321
  Transmission Date: 20081010
  Serious: Yes (Hospitalization)
  Sender: FDA-Public Use
  Company Number: US-JNJFOC-20080203833

PATIENT
  Sex: Female
  Weight: 90.72 kg

DRUGS (6)
  1. FENTANYL TRANSDERMAL SYSTEM [Suspect]
     Route: 062
  2. FENTANYL TRANSDERMAL SYSTEM [Suspect]
     Route: 062
  3. FENTANYL TRANSDERMAL SYSTEM [Suspect]
     Indication: BACK PAIN
     Route: 062
  4. NEXIUM [Concomitant]
     Indication: GASTROOESOPHAGEAL REFLUX DISEASE
     Route: 048
  5. FORTEO [Concomitant]
     Route: 058
  6. DILAUDID [Concomitant]
     Indication: PAIN
     Dosage: TWICE DAILY AS NEEDED
     Route: 048

REACTIONS (11)
  - BLADDER PROLAPSE [None]
  - BODY HEIGHT DECREASED [None]
  - CONFUSIONAL STATE [None]
  - CYSTITIS [None]
  - DIZZINESS [None]
  - DRUG EFFECT DECREASED [None]
  - MUSCULAR WEAKNESS [None]
  - PAIN MANAGEMENT [None]
  - PULMONARY THROMBOSIS [None]
  - VISION BLURRED [None]
  - WEIGHT DECREASED [None]
